FAERS Safety Report 6508478-4 (Version None)
Quarter: 2009Q4

REPORT INFORMATION
  Report Type: 
  Country: None (occurrence: None)
  Receive Date: 20091221
  Receipt Date: 20081113
  Transmission Date: 20100525
  Serious: No
  Sender: FDA-Public Use
  Company Number: US-ASTRAZENECA-2008UW25474

PATIENT
  Age: 67 Year
  Sex: Female

DRUGS (2)
  1. CRESTOR [Suspect]
     Indication: CORONARY ARTERY OCCLUSION
     Dosage: 5 MG
     Route: 048
     Dates: start: 20080401
  2. FOSAMAX [Concomitant]

REACTIONS (3)
  - JOINT STIFFNESS [None]
  - SKIN BURNING SENSATION [None]
  - TINNITUS [None]
